FAERS Safety Report 4931339-9 (Version None)
Quarter: 2006Q1

REPORT INFORMATION
  Report Type: 
  Country: None (occurrence: None)
  Receive Date: 20060228
  Receipt Date: 20060215
  Transmission Date: 20060701
  Serious: Yes (Other)
  Sender: FDA-Public Use
  Company Number: 2006-02-1370

PATIENT
  Age: 27 Month
  Sex: Female
  Weight: 13.6079 kg

DRUGS (1)
  1. CLARITIN [Suspect]
     Indication: SNEEZING
     Dosage: ONE DOSE ORAL
     Route: 048
     Dates: start: 20060215, end: 20060215

REACTIONS (4)
  - CONVERSION DISORDER [None]
  - CRYING [None]
  - HALLUCINATION [None]
  - PSYCHOTIC DISORDER [None]
